FAERS Safety Report 4626071-5 (Version None)
Quarter: 2005Q2

REPORT INFORMATION
  Report Type: 
  Country: None (occurrence: None)
  Receive Date: 20050404
  Receipt Date: 20050404
  Transmission Date: 20051028
  Serious: Yes (Other)
  Sender: FDA-Public Use
  Company Number: PHNU2005DE01513

PATIENT
  Sex: Female

DRUGS (2)
  1. LIORESAL [Suspect]
     Dosage: UNKNOWN
     Route: 048
  2. LIORESAL [Suspect]
     Dosage: 100 MG/DAY
     Route: 048

REACTIONS (1)
  - HYPOTHYROIDISM [None]
